FAERS Safety Report 5109162-4 (Version None)
Quarter: 2006Q3

REPORT INFORMATION
  Report Type: 
  Country: None (occurrence: None)
  Receive Date: 20060920
  Receipt Date: 20060816
  Transmission Date: 20061208
  Serious: Yes (Death, Hospitalization)
  Sender: FDA-Public Use
  Company Number: PHEH2006US10560

PATIENT
  Age: 49 Year
  Sex: Female
  Weight: 82.993 kg

DRUGS (2)
  1. ZELNORM [Suspect]
     Indication: GASTROINTESTINAL MOTILITY DISORDER
     Dosage: 6 MG, BID
     Route: 048
     Dates: start: 20060501
  2. ZELNORM [Suspect]
     Dosage: UNK, QD
     Dates: start: 20060602

REACTIONS (6)
  - ABDOMINAL PAIN [None]
  - AORTIC DISSECTION [None]
  - CHOLECYSTITIS [None]
  - HYPOTENSION [None]
  - NAUSEA [None]
  - SEPSIS [None]
